FAERS Safety Report 9160177 (Version 2)
Quarter: 2013Q1

REPORT INFORMATION
  Report Type: Spontaneous
  Country: JP (occurrence: JP)
  Receive Date: 20130313
  Receipt Date: 20130325
  Transmission Date: 20140127
  Serious: Yes (Other)
  Sender: FDA-Public Use
  Company Number: JP-ROCHE-1199879

PATIENT
  Age: 5 Year
  Sex: Female
  Weight: 16 kg

DRUGS (5)
  1. TAMIFLU [Suspect]
     Indication: INFLUENZA
     Route: 048
     Dates: start: 20130126
  2. ASVERIN (TIPEPIDINE HIBENZATE) [Concomitant]
     Dosage: DOSAGE IS UNCERTAIN.
     Route: 065
     Dates: start: 20130122
  3. MUCODYNE [Concomitant]
     Dosage: DOSAGE IS UNCERTAIN.
     Route: 065
     Dates: start: 20130122
  4. MUCOSOLVAN [Concomitant]
     Dosage: DOSAGE IS UNCERTAIN.
     Route: 065
     Dates: start: 20130122
  5. PERIACTIN [Concomitant]
     Dosage: DOSAGE IS UNCERTAIN.
     Route: 065
     Dates: start: 20130122

REACTIONS (2)
  - Abnormal behaviour [Recovered/Resolved]
  - Lower limb fracture [Unknown]
